FAERS Safety Report 9808930 (Version 5)
Quarter: 2014Q3

REPORT INFORMATION
  Report Type: Spontaneous
  Country: US (occurrence: US)
  Receive Date: 20140110
  Receipt Date: 20140826
  Transmission Date: 20150326
  Serious: Yes (Disabling, Other)
  Sender: FDA-Public Use
  Company Number: US-009507513-1104USA02995

PATIENT
  Sex: Male

DRUGS (9)
  1. PROSCAR [Suspect]
     Active Substance: FINASTERIDE
     Indication: ALOPECIA
     Dosage: 1 MG, QD
     Route: 048
     Dates: start: 20100219, end: 201011
  2. LUNESTA [Concomitant]
     Active Substance: ESZOPICLONE
     Dosage: 3 MG, HS
     Route: 048
     Dates: start: 20090819
  3. FINASTERIDE. [Suspect]
     Active Substance: FINASTERIDE
     Indication: ALOPECIA
     Dosage: 1 MG, QD
     Route: 048
     Dates: start: 20100219, end: 20100731
  4. WELLBUTRIN XL [Concomitant]
     Active Substance: BUPROPION HYDROCHLORIDE
     Dosage: 300 MG, QD
     Route: 048
     Dates: start: 20090819
  5. WELLBUTRIN [Suspect]
     Active Substance: BUPROPION HYDROCHLORIDE
     Indication: DEPRESSION
     Dosage: UNK
     Route: 048
     Dates: start: 2007, end: 20110322
  6. RESLIN TABLETS 25 [Concomitant]
     Active Substance: TRAZODONE HYDROCHLORIDE
  7. TRAZODONE HYDROCHLORIDE. [Concomitant]
     Active Substance: TRAZODONE HYDROCHLORIDE
     Indication: SLEEP DISORDER
     Dosage: UNK
     Dates: start: 2007, end: 2011
  8. PROSCAR [Suspect]
     Active Substance: FINASTERIDE
     Dosage: 5 MG, UNK
     Route: 048
     Dates: start: 20100219, end: 201011
  9. LAMICTAL [Concomitant]
     Active Substance: LAMOTRIGINE
     Indication: DEPRESSION
     Dosage: 200 MG, QD
     Route: 048
     Dates: start: 2007, end: 2011

REACTIONS (25)
  - Emotional distress [Unknown]
  - Hair texture abnormal [Unknown]
  - Male orgasmic disorder [Unknown]
  - Erectile dysfunction [Unknown]
  - Testicular pain [Unknown]
  - Sexual dysfunction [Not Recovered/Not Resolved]
  - Inappropriate schedule of drug administration [Unknown]
  - Diarrhoea [Unknown]
  - Carpal tunnel syndrome [Unknown]
  - Dysthymic disorder [Unknown]
  - Depression [Not Recovered/Not Resolved]
  - Anxiety [Not Recovered/Not Resolved]
  - Penis disorder [Unknown]
  - Drug administration error [Unknown]
  - Erectile dysfunction [Unknown]
  - Wrong technique in drug usage process [Unknown]
  - Solar lentigo [Unknown]
  - Testicular disorder [Unknown]
  - Testicular atrophy [Unknown]
  - Loss of libido [Unknown]
  - Peripheral coldness [Unknown]
  - Back pain [Unknown]
  - Organic erectile dysfunction [Unknown]
  - Hypersensitivity [Unknown]
  - Semen volume decreased [Unknown]

NARRATIVE: CASE EVENT DATE: 20100219
